FAERS Safety Report 9495336 (Version 1)
Quarter: 2013Q3

REPORT INFORMATION
  Report Type: Spontaneous
  Country: US (occurrence: US)
  Receive Date: 20130903
  Receipt Date: 20130903
  Transmission Date: 20140515
  Serious: Yes (Other)
  Sender: FDA-Public Use
  Company Number: US-GLAXOSMITHKLINE-A1039545A

PATIENT
  Age: 8 Year
  Sex: Female

DRUGS (5)
  1. ADVAIR [Suspect]
     Indication: ASTHMA
     Dosage: 2PUFF TWICE PER DAY
     Route: 055
     Dates: start: 201206
  2. ADVAIR [Suspect]
     Indication: ASTHMA
     Route: 055
  3. ZYRTEC [Suspect]
     Indication: PRODUCT USED FOR UNKNOWN INDICATION
     Route: 065
  4. VERAMYST [Concomitant]
  5. PREVACID [Concomitant]

REACTIONS (5)
  - Pharyngitis streptococcal [Recovered/Resolved]
  - Dizziness [Not Recovered/Not Resolved]
  - Chest pain [Not Recovered/Not Resolved]
  - Oral candidiasis [Unknown]
  - Lactose intolerance [Unknown]
